FAERS Safety Report 24418839 (Version 3)
Quarter: 2024Q4

REPORT INFORMATION
  Report Type: Report from Study
  Country: JP (occurrence: JP)
  Receive Date: 20241009
  Receipt Date: 20241126
  Transmission Date: 20250114
  Serious: Yes (Life-Threatening, Hospitalization, Other)
  Sender: ABBVIE
  Company Number: JP-TAKEDA-2024TJP014474

PATIENT
  Age: 78 Year
  Sex: Male
  Weight: 58 kg

DRUGS (7)
  1. LEUPROLIDE ACETATE [Suspect]
     Active Substance: LEUPROLIDE ACETATE
     Indication: Bulbospinal muscular atrophy congenital
     Dosage: FORM STRENGTH: 11.25 MILLIGRAM
     Route: 058
     Dates: start: 20171129, end: 20190417
  2. SILODOSIN [Concomitant]
     Active Substance: SILODOSIN
     Indication: Benign prostatic hyperplasia
     Dosage: FORM STRENGTH: 8 MILLIGRAM
  3. VESICARE [Concomitant]
     Active Substance: SOLIFENACIN SUCCINATE
     Indication: Hypertonic bladder
     Dosage: FORM STRENGTH: 5 MILLIGRAM
  4. URSODEOXYCHOLIC ACID ORION [Concomitant]
     Indication: Liver disorder
     Dosage: FORM STRENGTH: 600 MILLIGRAM
  5. METHYLCOBALAMIN [Concomitant]
     Active Substance: METHYLCOBALAMIN
     Indication: Vitamin B12 deficiency
     Dosage: FORM STRENGTH: 750 MICROGRAM
  6. FLUTICASONE PROPIONATE\SALMETEROL XINAFOATE [Concomitant]
     Active Substance: FLUTICASONE PROPIONATE\SALMETEROL XINAFOATE
     Indication: Product used for unknown indication
     Dosage: FORM STRENGTH: 100 MICROGRAM
  7. MUCOSAL [Concomitant]
     Indication: Bulbospinal muscular atrophy congenital
     Dosage: FORM STRENGTH: 45 MILLIGRAM

REACTIONS (3)
  - Cardio-respiratory arrest [Recovered/Resolved with Sequelae]
  - Hypoxic-ischaemic encephalopathy [Recovered/Resolved with Sequelae]
  - Pneumonia [Recovered/Resolved]

NARRATIVE: CASE EVENT DATE: 20190601
